FAERS Safety Report 19845264 (Version 2)
Quarter: 2021Q3

REPORT INFORMATION
  Report Type: Spontaneous
  Country: US (occurrence: US)
  Receive Date: 20210916
  Receipt Date: 20210927
  Transmission Date: 20211014
  Serious: Yes (Death)
  Sender: FDA-Public Use
  Company Number: US-TEVA-2021-US-1952593

PATIENT
  Age: 36 Year
  Sex: Female

DRUGS (4)
  1. GEMCITABINE. [Suspect]
     Active Substance: GEMCITABINE
     Indication: NEUROECTODERMAL NEOPLASM
     Dosage: SINGLE DOSE
     Route: 065
  2. DACARBAZINE. [Suspect]
     Active Substance: DACARBAZINE
     Indication: NEUROECTODERMAL NEOPLASM
     Dosage: SINGLE DOSE
     Route: 065
  3. GEMCITABINE. [Suspect]
     Active Substance: GEMCITABINE
     Indication: GASTROINTESTINAL CARCINOMA
  4. DACARBAZINE. [Suspect]
     Active Substance: DACARBAZINE
     Indication: GASTROINTESTINAL CARCINOMA

REACTIONS (2)
  - Drug ineffective for unapproved indication [Fatal]
  - Off label use [Fatal]
